FAERS Safety Report 4548274-0 (Version None)
Quarter: 2005Q1

REPORT INFORMATION
  Report Type: 
  Country: None (occurrence: None)
  Receive Date: 20050110
  Receipt Date: 20041229
  Transmission Date: 20050727
  Serious: Yes (Hospitalization)
  Sender: FDA-Public Use
  Company Number: FR-JNJFOC-20050101329

PATIENT
  Age: 42 Year
  Sex: Male

DRUGS (11)
  1. TRAMADOL HCL [Suspect]
     Indication: DRUG USE FOR UNKNOWN INDICATION
     Route: 049
     Dates: start: 20041114, end: 20041122
  2. LOVENOX [Suspect]
     Indication: DRUG USE FOR UNKNOWN INDICATION
     Route: 058
  3. RIFADIN [Suspect]
     Indication: DRUG USE FOR UNKNOWN INDICATION
     Route: 049
  4. IDARAC [Suspect]
     Indication: DRUG USE FOR UNKNOWN INDICATION
     Route: 049
  5. VANCOCIN HCL [Concomitant]
     Indication: DRUG USE FOR UNKNOWN INDICATION
     Route: 042
  6. CALCIPARINE [Concomitant]
     Route: 058
  7. AMAREL [Concomitant]
     Route: 049
  8. ATARAX [Concomitant]
     Route: 049
  9. PEVARYL [Concomitant]
     Route: 003
  10. FORLAX [Concomitant]
     Route: 065
  11. DALACINE [Concomitant]
     Route: 065

REACTIONS (1)
  - EOSINOPHILIA [None]
